FAERS Safety Report 24381694 (Version 1)
Quarter: 2024Q4

REPORT INFORMATION
  Report Type: Spontaneous
  Country: US (occurrence: US)
  Receive Date: 20241001
  Receipt Date: 20241001
  Transmission Date: 20250115
  Serious: No
  Sender: APOTEX
  Company Number: US-APOTEX-2024AP010585

PATIENT

DRUGS (1)
  1. OFLOXACIN OTIC [Suspect]
     Active Substance: OFLOXACIN
     Indication: Infection
     Dosage: 4 DOSAGE FORM, BID (4 DROPS 2 TIMES A DAY FOR 7 DAYS), MORE THAN 7 DAYS
     Route: 047

REACTIONS (2)
  - Incorrect route of product administration [Unknown]
  - Vision blurred [Unknown]
